FAERS Safety Report 13369338 (Version 2)
Quarter: 2017Q2

REPORT INFORMATION
  Report Type: Spontaneous
  Country: US (occurrence: US)
  Receive Date: 20170324
  Receipt Date: 20170410
  Transmission Date: 20170830
  Serious: Yes (Death, Hospitalization)
  Sender: FDA-Public Use
  Company Number: US-GLAXOSMITHKLINE-US2017039514

PATIENT
  Sex: Female
  Weight: 61.32 kg

DRUGS (2)
  1. BENLYSTA [Suspect]
     Active Substance: BELIMUMAB
     Dosage: UNK
  2. BENLYSTA [Suspect]
     Active Substance: BELIMUMAB
     Indication: SYSTEMIC LUPUS ERYTHEMATOSUS
     Dosage: UNK UNK, ONCE MONTHLY
     Route: 042
     Dates: start: 20140118

REACTIONS (3)
  - Malaise [Unknown]
  - Therapy cessation [Unknown]
  - Ill-defined disorder [Fatal]
